FAERS Safety Report 10145914 (Version 1)
Quarter: 2014Q2

REPORT INFORMATION
  Report Type: Spontaneous
  Country: US (occurrence: US)
  Receive Date: 20140501
  Receipt Date: 20140501
  Transmission Date: 20141212
  Serious: No
  Sender: FDA-Public Use
  Company Number: US-ABBVIE-13P-163-1092977-00

PATIENT
  Sex: Female
  Weight: 56.75 kg

DRUGS (5)
  1. CREON 12000 [Suspect]
     Indication: PANCREATITIS CHRONIC
     Dosage: TWO CAPSULES WITH MEALS AND ONE CAPUSLE WITH SNACKS
     Dates: start: 2007, end: 201301
  2. CREON 12000 [Suspect]
     Dosage: THREE CAPSULES WITH MEALS AND ONE WITH SNACKS
     Dates: start: 201301
  3. LISINOPRIL [Concomitant]
     Indication: HYPERTENSION
  4. METOPROLOL [Concomitant]
     Indication: HYPERTENSION
  5. HYDROCHLOROTHIAZIDE [Concomitant]
     Indication: HYPERTENSION

REACTIONS (3)
  - Abdominal distension [Not Recovered/Not Resolved]
  - Flatulence [Not Recovered/Not Resolved]
  - Constipation [Not Recovered/Not Resolved]
